FAERS Safety Report 8075465-7 (Version None)
Quarter: 2012Q1

REPORT INFORMATION
  Report Type: 
  Country: None (occurrence: None)
  Receive Date: 20120127
  Receipt Date: 20120123
  Transmission Date: 20120608
  Serious: Yes (Hospitalization, Disabling)
  Sender: FDA-Public Use
  Company Number: FR-PFIZER INC-2009245144

PATIENT
  Age: 68 Year
  Sex: Male
  Weight: 56 kg

DRUGS (5)
  1. ZOLPIDEM [Concomitant]
     Indication: INSOMNIA
  2. SUNITINIB MALATE [Suspect]
     Indication: PROSTATE CANCER
     Dosage: 37.5 MG, 1X/DAY
     Route: 048
     Dates: start: 20090529, end: 20090715
  3. TRIPTORELIN [Concomitant]
     Indication: PROSTATE CANCER
     Dosage: UNK
  4. PREDNISONE TAB [Suspect]
     Indication: PROSTATE CANCER
     Dosage: 5 MG, 2X/DAY
     Route: 048
     Dates: start: 20090529, end: 20090715
  5. FLUOXETINE [Concomitant]
     Indication: ANXIETY
     Dosage: UNK
     Dates: start: 20070101

REACTIONS (1)
  - GENERAL PHYSICAL HEALTH DETERIORATION [None]
